FAERS Safety Report 8161899-9 (Version None)
Quarter: 2012Q1

REPORT INFORMATION
  Report Type: 
  Country: None (occurrence: None)
  Receive Date: 20120224
  Receipt Date: 20111207
  Transmission Date: 20120608
  Serious: No
  Sender: FDA-Public Use
  Company Number: US-BRISTOL-MYERS SQUIBB COMPANY-16221780

PATIENT
  Age: 67 Year
  Sex: Male

DRUGS (2)
  1. VICTOZA [Suspect]
  2. METFORMIN HCL [Suspect]

REACTIONS (4)
  - VOMITING [None]
  - MALAISE [None]
  - DIARRHOEA [None]
  - NAUSEA [None]
